FAERS Safety Report 10539983 (Version 29)
Quarter: 2025Q4

REPORT INFORMATION
  Report Type: Report from Study
  Country: CA (occurrence: CA)
  Receive Date: 20141024
  Receipt Date: 20251112
  Transmission Date: 20260118
  Serious: Yes (Hospitalization, Other)
  Sender: ROCHE
  Company Number: CA-ROCHE-1479033

PATIENT
  Age: 66 Year
  Sex: Female

DRUGS (20)
  1. XOLAIR [Suspect]
     Active Substance: OMALIZUMAB
     Indication: Asthma
     Route: 058
     Dates: start: 20140226
  2. XOLAIR [Suspect]
     Active Substance: OMALIZUMAB
     Dosage: UNK
     Route: 058
     Dates: start: 20140917
  3. XOLAIR [Suspect]
     Active Substance: OMALIZUMAB
     Dosage: UNK
     Route: 058
     Dates: start: 20161220
  4. XOLAIR [Suspect]
     Active Substance: OMALIZUMAB
     Dosage: UNK
     Route: 058
     Dates: start: 20170116
  5. XOLAIR [Suspect]
     Active Substance: OMALIZUMAB
     Dosage: UNK
     Route: 058
     Dates: start: 20170214
  6. XOLAIR [Suspect]
     Active Substance: OMALIZUMAB
     Dosage: UNK
     Route: 058
     Dates: start: 20170314
  7. XOLAIR [Suspect]
     Active Substance: OMALIZUMAB
     Dosage: UNK
     Route: 058
     Dates: start: 20170411
  8. XOLAIR [Suspect]
     Active Substance: OMALIZUMAB
     Dosage: UNK
     Route: 058
     Dates: start: 20170509
  9. XOLAIR [Suspect]
     Active Substance: OMALIZUMAB
     Route: 058
     Dates: start: 20170606
  10. XOLAIR [Suspect]
     Active Substance: OMALIZUMAB
     Route: 058
     Dates: start: 20170704
  11. XOLAIR [Suspect]
     Active Substance: OMALIZUMAB
     Route: 058
     Dates: start: 20170803
  12. XOLAIR [Suspect]
     Active Substance: OMALIZUMAB
     Route: 058
     Dates: start: 20170829
  13. XOLAIR [Suspect]
     Active Substance: OMALIZUMAB
     Route: 058
     Dates: start: 20181227
  14. XOLAIR [Suspect]
     Active Substance: OMALIZUMAB
     Route: 058
     Dates: start: 20150209
  15. XOLAIR [Suspect]
     Active Substance: OMALIZUMAB
     Route: 058
     Dates: start: 20220322
  16. XOLAIR [Suspect]
     Active Substance: OMALIZUMAB
     Route: 058
  17. XOLAIR [Suspect]
     Active Substance: OMALIZUMAB
     Route: 058
     Dates: start: 2025
  18. SINGULAIR [Concomitant]
     Active Substance: MONTELUKAST SODIUM
     Indication: Product used for unknown indication
     Dosage: UNK
     Route: 065
  19. SYMBICORT [Concomitant]
     Active Substance: BUDESONIDE\FORMOTEROL FUMARATE DIHYDRATE
     Indication: Product used for unknown indication
     Dosage: UNK
     Route: 065
  20. ALVESCO [Concomitant]
     Active Substance: CICLESONIDE
     Indication: Product used for unknown indication
     Dosage: UNK
     Route: 065

REACTIONS (42)
  - Cerebrovascular accident [Unknown]
  - Malaise [Unknown]
  - Visual impairment [Unknown]
  - Memory impairment [Unknown]
  - Blood pressure systolic increased [Unknown]
  - Reversible airways obstruction [Unknown]
  - Abdominal infection [Unknown]
  - Pleuroparenchymal fibroelastosis [Unknown]
  - Constipation [Not Recovered/Not Resolved]
  - Blood glucose abnormal [Unknown]
  - Blood pressure abnormal [Unknown]
  - Blood pressure fluctuation [Unknown]
  - Pleural effusion [Unknown]
  - Body temperature decreased [Unknown]
  - Bronchitis [Unknown]
  - Chest pain [Unknown]
  - Chest discomfort [Unknown]
  - Pyrexia [Recovered/Resolved]
  - Cough [Unknown]
  - Viral infection [Unknown]
  - Forced vital capacity decreased [Unknown]
  - Lung diffusion disorder [Unknown]
  - Nervousness [Unknown]
  - Allergy to chemicals [Unknown]
  - Fatigue [Unknown]
  - Pruritus [Unknown]
  - Orthostatic hypotension [Unknown]
  - Dizziness [Unknown]
  - Fall [Unknown]
  - Chronic obstructive pulmonary disease [Unknown]
  - Dyspnoea [Unknown]
  - Abdominal distension [Unknown]
  - Asthenia [Unknown]
  - Forced expiratory volume decreased [Not Recovered/Not Resolved]
  - Therapeutic response shortened [Unknown]
  - Pneumonia [Unknown]
  - Lung hyperinflation [Unknown]
  - Obstructive airways disorder [Unknown]
  - Lung diffusion test decreased [Unknown]
  - Renal failure [Unknown]
  - Contrast media reaction [Unknown]
  - Speech disorder [Unknown]

NARRATIVE: CASE EVENT DATE: 20141001
